FAERS Safety Report 6387127-2 (Version None)
Quarter: 2009Q4

REPORT INFORMATION
  Report Type: 
  Country: None (occurrence: None)
  Receive Date: 20091002
  Receipt Date: 20090925
  Transmission Date: 20100525
  Serious: Yes (Hospitalization, Other)
  Sender: FDA-Public Use
  Company Number: US-ABBOTT-09P-163-0599506-00

PATIENT
  Weight: 72 kg

DRUGS (6)
  1. NIASPAN [Suspect]
     Indication: BLOOD CHOLESTEROL INCREASED
     Dates: start: 20080101
  2. DIOVAN [Suspect]
     Indication: ARRHYTHMIA
     Dates: end: 20090201
  3. LASIX [Concomitant]
     Indication: RENAL FAILURE CHRONIC
  4. TOPROL-XL [Concomitant]
     Indication: ARRHYTHMIA
     Dates: start: 20090201
  5. TOPROL-XL [Concomitant]
     Dates: end: 20090201
  6. ISOSORBIDE [Concomitant]
     Indication: ARRHYTHMIA

REACTIONS (7)
  - ARRHYTHMIA [None]
  - BLOOD CHOLESTEROL INCREASED [None]
  - BLOOD CREATININE INCREASED [None]
  - BLOOD PRESSURE DECREASED [None]
  - MEDICATION RESIDUE [None]
  - PERICARDIAL EFFUSION [None]
  - RENAL DISORDER [None]
